FAERS Safety Report 17964328 (Version 2)
Quarter: 2021Q1

REPORT INFORMATION
  Report Type: Report from Study
  Country: US (occurrence: US)
  Receive Date: 20200630
  Receipt Date: 20210127
  Transmission Date: 20210419
  Serious: Yes (Death)
  Sender: FDA-Public Use
  Company Number: US-VANDA PHARMACEUTICALS, INC-2020TASUS004090

PATIENT
  Age: 39 Year
  Sex: Male
  Weight: 81.59 kg

DRUGS (1)
  1. HETLIOZ [Suspect]
     Active Substance: TASIMELTEON
     Indication: NON-24-HOUR SLEEP-WAKE DISORDER
     Dosage: 20 MG, QD
     Route: 048
     Dates: start: 20170522

REACTIONS (1)
  - Seizure [Fatal]

NARRATIVE: CASE EVENT DATE: 20200619
